FAERS Safety Report 15594852 (Version 2)
Quarter: 2018Q4

REPORT INFORMATION
  Report Type: Spontaneous
  Country: BR (occurrence: BR)
  Receive Date: 20181107
  Receipt Date: 20181217
  Transmission Date: 20190205
  Serious: Yes (Hospitalization, Other)
  Sender: FDA-Public Use
  Company Number: BR-TAKEDA-2018TUS031964

PATIENT
  Age: 83 Year
  Sex: Female

DRUGS (6)
  1. DEXILANT [Suspect]
     Active Substance: DEXLANSOPRAZOLE
     Indication: GASTRITIS
  2. SELOZOK [Concomitant]
     Active Substance: METOPROLOL SUCCINATE
     Indication: HYPERTENSION
     Dosage: 50 MG, UNK
     Route: 048
  3. DEXILANT [Suspect]
     Active Substance: DEXLANSOPRAZOLE
     Indication: OESOPHAGITIS
     Dosage: 60 MG, QD
     Route: 048
  4. DEXILANT [Suspect]
     Active Substance: DEXLANSOPRAZOLE
     Indication: HIATUS HERNIA
  5. DEXILANT [Suspect]
     Active Substance: DEXLANSOPRAZOLE
     Indication: OESOPHAGEAL INJURY
  6. CARDIZEM [Concomitant]
     Active Substance: DILTIAZEM HYDROCHLORIDE
     Indication: CARDIAC DISORDER
     Dosage: 60 MG, UNK
     Route: 048

REACTIONS (3)
  - Dehydration [Recovered/Resolved]
  - Diarrhoea [Recovered/Resolved]
  - Weight decreased [Recovered/Resolved]
